FAERS Safety Report 5474102-5 (Version None)
Quarter: 2007Q3

REPORT INFORMATION
  Report Type: 
  Country: None (occurrence: None)
  Receive Date: 20070928
  Receipt Date: 20070928
  Transmission Date: 20080115
  Serious: Yes (Disabling)
  Sender: FDA-Public Use
  Company Number: None

PATIENT
  Age: 47 Year
  Sex: Male
  Weight: 56 kg

DRUGS (1)
  1. ZERIT [Suspect]
     Dosage: ZERIT BID PO
     Route: 048
     Dates: start: 19980101, end: 20030101

REACTIONS (4)
  - ECONOMIC PROBLEM [None]
  - EMOTIONAL DISTRESS [None]
  - FACIAL WASTING [None]
  - LIPODYSTROPHY ACQUIRED [None]
